FAERS Safety Report 4548281-8 (Version None)
Quarter: 2004Q4

REPORT INFORMATION
  Report Type: 
  Country: None (occurrence: None)
  Receive Date: 20041227
  Receipt Date: 20041011
  Transmission Date: 20050328
  Serious: No
  Sender: FDA-Public Use
  Company Number: 04P-163-0276846-00

PATIENT
  Age: 76 Year
  Sex: Female

DRUGS (3)
  1. HUMIRA [Suspect]
     Indication: RHEUMATOID ARTHRITIS
     Dosage: 40 MG, 1 IN 2 WK, SUBCUTANEOUS
     Route: 058
     Dates: start: 20040921
  2. CELECOXIB [Concomitant]
  3. HYDROCHLOROQUINE PHOSPHATE [Concomitant]

REACTIONS (3)
  - INJECTION SITE BURNING [None]
  - INJECTION SITE PRURITUS [None]
  - INJECTION SITE VESICLES [None]
